FAERS Safety Report 7314796-2 (Version None)
Quarter: 2011Q1

REPORT INFORMATION
  Report Type: 
  Country: None (occurrence: None)
  Receive Date: 20110225
  Receipt Date: 20110110
  Transmission Date: 20110831
  Serious: No
  Sender: FDA-Public Use
  Company Number: US-MYLANLABS-2010S1022845

PATIENT
  Age: 14 Year
  Sex: Male
  Weight: 68.04 kg

DRUGS (4)
  1. AMNESTEEM [Suspect]
     Indication: ACNE CYSTIC
     Route: 048
     Dates: start: 20101101, end: 20101101
  2. AMNESTEEM [Suspect]
     Route: 048
     Dates: start: 20101101, end: 20101201
  3. ABILIFY [Concomitant]
  4. LAMICTAL [Concomitant]

REACTIONS (2)
  - EMOTIONAL DISORDER [None]
  - DEPRESSION [None]
